FAERS Safety Report 25214033 (Version 1)
Quarter: 2025Q2

REPORT INFORMATION
  Report Type: Spontaneous
  Country: US (occurrence: None)
  Receive Date: 20250417
  Receipt Date: 20250417
  Transmission Date: 20250716
  Serious: Yes (Disabling)
  Sender: FDA-CTU
  Company Number: None

PATIENT
  Age: 42 Year
  Sex: Female
  Weight: 76.5 kg

DRUGS (20)
  1. XOLAIR [Suspect]
     Active Substance: OMALIZUMAB
     Indication: Multiple allergies
     Route: 050
     Dates: start: 20250217, end: 20250217
  2. TRAMADOL [Concomitant]
     Active Substance: TRAMADOL
  3. TIZANIDINE [Concomitant]
     Active Substance: TIZANIDINE
  4. ROPINIROLE [Concomitant]
     Active Substance: ROPINIROLE
  5. ADDERALL [Concomitant]
     Active Substance: AMPHETAMINE ASPARTATE\AMPHETAMINE SULFATE\DEXTROAMPHETAMINE SACCHARATE\DEXTROAMPHETAMINE SULFATE
  6. TOPIRAMATE [Concomitant]
     Active Substance: TOPIRAMATE
  7. VRAYLAR [Concomitant]
     Active Substance: CARIPRAZINE
  8. SEROQUEL [Concomitant]
     Active Substance: QUETIAPINE FUMARATE
  9. TRAZODONE [Concomitant]
     Active Substance: TRAZODONE HYDROCHLORIDE
  10. PRAZOSIN [Concomitant]
     Active Substance: PRAZOSIN
  11. DEXILANT [Concomitant]
     Active Substance: DEXLANSOPRAZOLE
  12. HYDROXYZINE [Concomitant]
     Active Substance: HYDROXYZINE HYDROCHLORIDE
  13. BUSPIRONE [Concomitant]
     Active Substance: BUSPIRONE HYDROCHLORIDE
  14. FAMOTIDINE [Concomitant]
     Active Substance: FAMOTIDINE
  15. SEROQUEL [Concomitant]
     Active Substance: QUETIAPINE FUMARATE
  16. TOPIRAMATE [Concomitant]
     Active Substance: TOPIRAMATE
  17. ONDANSETRON [Concomitant]
     Active Substance: ONDANSETRON
  18. ALBUTEROL [Concomitant]
     Active Substance: ALBUTEROL
  19. ZYRTEC [Concomitant]
     Active Substance: CETIRIZINE HYDROCHLORIDE
  20. Culturelle women^s 4-1 probiotic [Concomitant]

REACTIONS (8)
  - Dysphemia [None]
  - Ophthalmic migraine [None]
  - Fatigue [None]
  - Pain [None]
  - Insomnia [None]
  - Amnesia [None]
  - Impaired driving ability [None]
  - Photophobia [None]

NARRATIVE: CASE EVENT DATE: 20250303
